FAERS Safety Report 6912297-4 (Version None)
Quarter: 2010Q3

REPORT INFORMATION
  Report Type: 
  Country: None (occurrence: None)
  Receive Date: 20100806
  Receipt Date: 20080421
  Transmission Date: 20110219
  Serious: No
  Sender: FDA-Public Use
  Company Number: US-PFIZER INC-2008025420

PATIENT
  Sex: Male
  Weight: 95.454 kg

DRUGS (11)
  1. DETROL LA [Suspect]
     Indication: MICTURITION URGENCY
  2. OMEPRAZOLE [Concomitant]
  3. GLIPIZIDE [Concomitant]
     Indication: DIABETES MELLITUS
  4. DIGOXIN [Concomitant]
     Indication: ATRIAL FIBRILLATION
  5. DIGOXIN [Concomitant]
     Indication: ARTERIAL HAEMORRHAGE
  6. WARFARIN SODIUM [Concomitant]
  7. CALCIUM [Concomitant]
  8. ZOLPIDEM [Concomitant]
     Indication: SLEEP DISORDER
  9. GEMFIBROZIL [Concomitant]
     Indication: BLOOD TRIGLYCERIDES INCREASED
  10. TRAVATAN [Concomitant]
  11. ALL OTHER THERAPEUTIC PRODUCTS [Concomitant]

REACTIONS (1)
  - DRUG INEFFECTIVE [None]
